FAERS Safety Report 17175608 (Version 2)
Quarter: 2024Q4

REPORT INFORMATION
  Report Type: Spontaneous
  Country: IT (occurrence: IT)
  Receive Date: 20191219
  Receipt Date: 20241223
  Transmission Date: 20250114
  Serious: Yes (Other)
  Sender: MYLAN
  Company Number: IT-PFM-2019-10040

PATIENT
  Age: 60 Year
  Sex: Female

DRUGS (4)
  1. CITALOPRAM [Suspect]
     Active Substance: CITALOPRAM
     Indication: Product used for unknown indication
     Dosage: 20 MILLILITER, TOTAL (20 ML, IN ONE TIME)
     Route: 048
     Dates: start: 20190808, end: 20190808
  2. RIVOTRIL [Suspect]
     Active Substance: CLONAZEPAM
     Indication: Product used for unknown indication
     Dosage: 20 MILLILITER, TOTAL (20 ML AT ONE TIME)
     Route: 048
     Dates: start: 20190808, end: 20190808
  3. LEVOTHYROXINE SODIUM [Suspect]
     Active Substance: LEVOTHYROXINE SODIUM
     Indication: Product used for unknown indication
     Dosage: 25 DOSAGE FORM, TOTAL (25 TABLETS IN ONE TIME)
     Route: 048
  4. FERROUS SULFATE [Suspect]
     Active Substance: FERROUS SULFATE
     Indication: Product used for unknown indication
     Dosage: 800 MILLIGRAM, TOTAL (800 MG, 10 TABLETS IN ONE TIME)
     Route: 048
     Dates: start: 20190808, end: 20190808

REACTIONS (3)
  - Intentional self-injury [Unknown]
  - Sopor [Unknown]
  - Intentional overdose [Unknown]

NARRATIVE: CASE EVENT DATE: 20190808
